FAERS Safety Report 7734663-X (Version None)
Quarter: 2011Q3

REPORT INFORMATION
  Report Type: 
  Country: None (occurrence: None)
  Receive Date: 20110901
  Receipt Date: 20110417
  Transmission Date: 20111222
  Serious: Yes (Death)
  Sender: FDA-Public Use
  Company Number: GB-DEXPHARM-20110452

PATIENT
  Age: 30 Year
  Sex: Female

DRUGS (6)
  1. CITALOPRAM HYDROBROMIDE [Concomitant]
  2. RISPERIDONE [Concomitant]
  3. SYMBICORT [Concomitant]
  4. ALVOGYL [Suspect]
     Dosage: BUCCAL
     Route: 002
     Dates: start: 20110202
  5. LORAZEPAM [Concomitant]
  6. CHLORHEXIDINE GLUCONATE [Suspect]
     Dosage: BUCCAL
     Route: 002

REACTIONS (2)
  - ANAPHYLACTIC REACTION [None]
  - DRUG HYPERSENSITIVITY [None]
